FAERS Safety Report 14155753 (Version 1)
Quarter: 2017Q4

REPORT INFORMATION
  Report Type: Spontaneous
  Country: US (occurrence: US)
  Receive Date: 20171103
  Receipt Date: 20171103
  Transmission Date: 20180321
  Serious: Yes (Other)
  Sender: FDA-Public Use
  Company Number: US-GEHC-2017CSU003520

PATIENT
  Sex: Male

DRUGS (1)
  1. OMNIPAQUE [Suspect]
     Active Substance: IOHEXOL
     Indication: PRODUCT USED FOR UNKNOWN INDICATION
     Dosage: UNK UNK, SINGLE
     Route: 065
     Dates: start: 20171019, end: 20171019

REACTIONS (3)
  - Malaise [Unknown]
  - Unresponsive to stimuli [Unknown]
  - Vomiting [Unknown]

NARRATIVE: CASE EVENT DATE: 20171019
